FAERS Safety Report 7494755-X (Version None)
Quarter: 2011Q2

REPORT INFORMATION
  Report Type: 
  Country: None (occurrence: None)
  Receive Date: 20110520
  Receipt Date: 20110519
  Transmission Date: 20111010
  Serious: Yes (Hospitalization)
  Sender: FDA-Public Use
  Company Number: US-SHIRE-SPV1-2011-00824

PATIENT
  Sex: Male
  Weight: 72.562 kg

DRUGS (1)
  1. VYVANSE [Suspect]
     Indication: ATTENTION DEFICIT/HYPERACTIVITY DISORDER
     Dosage: 70 MG, 1X/DAY:QD
     Route: 048
     Dates: start: 20100101

REACTIONS (5)
  - AMNESIA [None]
  - RIB FRACTURE [None]
  - CLAVICLE FRACTURE [None]
  - FALL [None]
  - CONCUSSION [None]
